FAERS Safety Report 13954236 (Version 1)
Quarter: 2017Q3

REPORT INFORMATION
  Report Type: Spontaneous
  Country: IT (occurrence: IT)
  Receive Date: 20170911
  Receipt Date: 20170911
  Transmission Date: 20171128
  Serious: Yes (Death)
  Sender: FDA-Public Use
  Company Number: IT-FERRINGPH-2017FE04277

PATIENT

DRUGS (2)
  1. BETAMETHASONE. [Suspect]
     Active Substance: BETAMETHASONE
     Indication: OPTIC ISCHAEMIC NEUROPATHY
     Dosage: 2 MG/0.5ML, 2 TIMES
     Route: 056
  2. DESMOPRESSIN [Suspect]
     Active Substance: DESMOPRESSIN
     Indication: OPTIC ISCHAEMIC NEUROPATHY
     Dosage: 2 ?G/0.5 ML /2 TIMES
     Route: 056

REACTIONS (3)
  - Off label use [Fatal]
  - Acute myocardial infarction [Fatal]
  - Product use issue [Fatal]
